FAERS Safety Report 14140405 (Version 1)
Quarter: 2017Q4

REPORT INFORMATION
  Report Type: Spontaneous
  Country: US (occurrence: US)
  Receive Date: 20171030
  Receipt Date: 20171030
  Transmission Date: 20180321
  Serious: No
  Sender: FDA-Public Use
  Company Number: PHEH2017US034248

PATIENT
  Sex: Female

DRUGS (1)
  1. ALOMIDE [Suspect]
     Active Substance: LODOXAMIDE TROMETHAMINE
     Indication: PRODUCT USED FOR UNKNOWN INDICATION
     Route: 047

REACTIONS (1)
  - Lacrimation increased [Unknown]
